FAERS Safety Report 17504671 (Version 1)
Quarter: 2020Q1

REPORT INFORMATION
  Report Type: Spontaneous
  Country: US (occurrence: US)
  Receive Date: 20200305
  Receipt Date: 20200305
  Transmission Date: 20200409
  Serious: No
  Sender: FDA-Public Use
  Company Number: US-SA-2020SA057060

PATIENT
  Sex: Male

DRUGS (1)
  1. DUPIXENT [Suspect]
     Active Substance: DUPILUMAB
     Indication: DERMATITIS ATOPIC
     Dosage: UNK
     Dates: start: 201804, end: 201812

REACTIONS (5)
  - Ocular hyperaemia [Unknown]
  - Dermatitis atopic [Unknown]
  - Rash [Unknown]
  - Conjunctivitis [Unknown]
  - Drug ineffective [Unknown]
